FAERS Safety Report 14691463 (Version 1)
Quarter: 2018Q1

REPORT INFORMATION
  Report Type: Spontaneous
  Country: DE (occurrence: DE)
  Receive Date: 20180328
  Receipt Date: 20180328
  Transmission Date: 20180509
  Serious: Yes (Hospitalization, Other)
  Sender: FDA-Public Use
  Company Number: DE-AMGEN-DEUSP2018040910

PATIENT
  Sex: Male

DRUGS (24)
  1. EPLERENONE. [Concomitant]
     Active Substance: EPLERENONE
     Indication: CARDIAC FAILURE
     Dosage: 25 MG, BID
     Route: 048
  2. CYCLOPHOSPHAMIDE. [Suspect]
     Active Substance: CYCLOPHOSPHAMIDE
     Dosage: UNK UNK, CYCLICAL (CYCLE 1)
     Route: 042
  3. DOXORUBICIN [Suspect]
     Active Substance: DOXORUBICIN
     Dosage: UNK UNK, CYCLICAL (CYCLE 1)
     Route: 042
  4. PREDNISOLON [Suspect]
     Active Substance: PREDNISOLONE
     Dosage: UNK, CYCLICAL (CYCLE1)
     Route: 048
  5. ENALAPRIL [Concomitant]
     Active Substance: ENALAPRIL
     Indication: HYPERTENSION
     Dosage: 2.5 MG, BID
     Route: 048
  6. ACICLOVIR [Concomitant]
     Active Substance: ACYCLOVIR
     Indication: PROPHYLAXIS
     Dosage: 400 MG, QID
     Route: 048
     Dates: start: 201404
  7. COLECALCIFEROL [Concomitant]
     Active Substance: CHOLECALCIFEROL
     Indication: PROPHYLAXIS
     Dosage: 5 MG, QWK
     Route: 048
     Dates: start: 201404
  8. PEGFILGRASTIM [Suspect]
     Active Substance: PEGFILGRASTIM
     Indication: B-CELL LYMPHOMA
     Dosage: 6 MG, QD (CYCLE 4)
     Route: 058
     Dates: start: 20140616, end: 20140616
  9. RITUXIMAB. [Suspect]
     Active Substance: RITUXIMAB
     Indication: B-CELL LYMPHOMA
     Dosage: 731 MG, Q2WK (CYCLE 4)
     Route: 042
     Dates: start: 20140703, end: 20140703
  10. BISOPROLOL HEMIFUMARATE [Concomitant]
     Active Substance: BISOPROLOL FUMARATE
     Indication: HYPERTENSION
     Dosage: 2.5 MG, BID
     Route: 048
  11. RANOLAZINE. [Concomitant]
     Active Substance: RANOLAZINE
     Indication: HYPERTENSION
     Dosage: 375 MG, BID
     Route: 048
  12. TRIMETHOPRIM SULFA [Concomitant]
     Active Substance: TRIMETHOPRIM SULFATE
     Indication: PROPHYLAXIS
     Dosage: UNK 160/80 MG (2 IN 2 WK)
     Route: 048
     Dates: start: 201404
  13. CYCLOPHOSPHAMIDE. [Suspect]
     Active Substance: CYCLOPHOSPHAMIDE
     Indication: B-CELL LYMPHOMA
     Dosage: 1463 MG, Q2WK (CYCLE 4)
     Route: 042
     Dates: start: 20140613, end: 20140613
  14. VINCRISTINE [Suspect]
     Active Substance: VINCRISTINE
     Dosage: UNK UNK, CYCLICAL (CYCLE 1)
     Route: 042
  15. FUROSEMIDE. [Concomitant]
     Active Substance: FUROSEMIDE
     Indication: HYPERTENSION
     Dosage: 40 MG, BID
     Route: 048
  16. EZETIMIBE/SIMVASTATIN [Concomitant]
     Active Substance: EZETIMIBE\SIMVASTATIN
     Indication: HYPERLIPIDAEMIA
     Dosage: UNK UNK, QD (10/40 MG, 1/DAY)
     Route: 048
  17. PEGFILGRASTIM [Suspect]
     Active Substance: PEGFILGRASTIM
     Dosage: UNK UNK, CYCLICAL (CYCLE 1)
     Route: 058
  18. RITUXIMAB. [Suspect]
     Active Substance: RITUXIMAB
     Dosage: UNK UNK, CYCLICAL (CYCLE 1)
     Route: 042
  19. PANTOPRAZOLE SODIUM. [Concomitant]
     Active Substance: PANTOPRAZOLE SODIUM
     Indication: PROPHYLAXIS
     Dosage: 40 MG, QD
     Route: 048
     Dates: start: 201404
  20. ENOXAPARIN SODIUM. [Concomitant]
     Active Substance: ENOXAPARIN SODIUM
     Indication: PROPHYLAXIS
     Dosage: 1 ML, QD
     Route: 058
  21. VINCRISTINE [Suspect]
     Active Substance: VINCRISTINE
     Indication: B-CELL LYMPHOMA
     Dosage: 4.18 MG, Q2WK (CYCLE 4)
     Route: 042
     Dates: start: 20140613, end: 20140613
  22. DOXORUBICIN [Suspect]
     Active Substance: DOXORUBICIN
     Indication: B-CELL LYMPHOMA
     Dosage: 96 MG, Q2WK (CYCLE 4)
     Route: 042
     Dates: start: 20140613, end: 20140613
  23. PREDNISOLON [Suspect]
     Active Substance: PREDNISOLONE
     Indication: B-CELL LYMPHOMA
     Dosage: 100 MG, CYCLICAL (CYCLE 4, 5 DAYS OF CYCLE)
     Route: 048
     Dates: start: 20140613, end: 20140617
  24. PANTOPRAZOLE SODIUM. [Concomitant]
     Active Substance: PANTOPRAZOLE SODIUM
     Dosage: UNK

REACTIONS (4)
  - General physical health deterioration [Recovered/Resolved]
  - Abdominal pain upper [Recovered/Resolved]
  - Arrhythmia [Unknown]
  - Back pain [Recovered/Resolved]

NARRATIVE: CASE EVENT DATE: 20140707
